FAERS Safety Report 8596350-8 (Version None)
Quarter: 2012Q3

REPORT INFORMATION
  Report Type: 
  Country: None (occurrence: None)
  Receive Date: 20120815
  Receipt Date: 20120801
  Transmission Date: 20120928
  Serious: Yes (Other)
  Sender: FDA-Public Use
  Company Number: NO-ROCHE-1082397

PATIENT
  Sex: Female

DRUGS (12)
  1. MABTHERA [Suspect]
     Dosage: GIVEN AFTER 5 MONTHS FROM THE EVENT
     Dates: start: 20080101
  2. GOLD [Suspect]
     Indication: JUVENILE ARTHRITIS
  3. SULFASALAZINE [Suspect]
     Indication: JUVENILE ARTHRITIS
  4. ETANERCEPT [Suspect]
     Indication: JUVENILE ARTHRITIS
  5. CHLOROQUINE [Suspect]
     Indication: JUVENILE ARTHRITIS
  6. METHOTREXATE SODIUM [Suspect]
     Dosage: TREATMENT AFTER RITUXIMAB
  7. CHLOROQUINE HCL [Suspect]
     Indication: JUVENILE ARTHRITIS
  8. PREDNISOLONE [Concomitant]
  9. METHOTREXATE SODIUM [Suspect]
     Indication: JUVENILE ARTHRITIS
     Dosage: PREVOIUS TREATMENT BEFORE RITUXIMAB
  10. AZATHIOPRINE SODIUM [Suspect]
     Indication: LEUKOPENIA
  11. MABTHERA [Suspect]
     Indication: RHEUMATOID ARTHRITIS
     Dates: start: 20080601
  12. AZATHIOPRINE SODIUM [Suspect]
     Indication: JUVENILE ARTHRITIS

REACTIONS (1)
  - NEUTROPENIA [None]
